FAERS Safety Report 13880898 (Version 1)
Quarter: 2017Q3

REPORT INFORMATION
  Report Type: Spontaneous
  Country: US (occurrence: US)
  Receive Date: 20170815
  Receipt Date: 20170815
  Transmission Date: 20171127
  Serious: Yes (Life-Threatening, Hospitalization, Disabling, Other)
  Sender: FDA-Public Use
  Company Number: None

PATIENT
  Age: 48 Year
  Sex: Male
  Weight: 135 kg

DRUGS (2)
  1. TRULICITY [Suspect]
     Active Substance: DULAGLUTIDE
     Indication: DIABETES MELLITUS
     Dosage: ?          QUANTITY:1 INJECTION(S);OTHER FREQUENCY:1 X WEEKLY;?
     Route: 058
     Dates: start: 20170318, end: 20170325
  2. MULTI- VITAMIN FOR MEN [Concomitant]

REACTIONS (7)
  - Depression [None]
  - Vomiting [None]
  - Abdominal distension [None]
  - Diarrhoea [None]
  - Flatulence [None]
  - Dehydration [None]
  - Anal incontinence [None]

NARRATIVE: CASE EVENT DATE: 20170318
